FAERS Safety Report 8607568-X (Version None)
Quarter: 2012Q3

REPORT INFORMATION
  Report Type: 
  Country: None (occurrence: None)
  Receive Date: 20120821
  Receipt Date: 20120810
  Transmission Date: 20120928
  Serious: Yes (Hospitalization)
  Sender: FDA-Public Use
  Company Number: FR-NOVOPROD-358029

PATIENT
  Age: 83 Year
  Sex: Male

DRUGS (11)
  1. INNOVAR [Suspect]
     Indication: PRODUCT USED FOR UNKNOWN INDICATION
     Dosage: 100/6 MICROG/DOSE
     Route: 045
     Dates: start: 20100101, end: 20120529
  2. LASIX [Suspect]
     Indication: PRODUCT USED FOR UNKNOWN INDICATION
     Dosage: 20 MG, QD
     Route: 048
     Dates: start: 20080515, end: 20120529
  3. RAMIPRIL [Suspect]
     Indication: PRODUCT USED FOR UNKNOWN INDICATION
     Dosage: 2.5 MG, QD
     Route: 048
     Dates: start: 20110420
  4. RAMIPRIL [Suspect]
     Dosage: 5 MG, QD
     Route: 065
     Dates: start: 20111026
  5. TADENAN [Concomitant]
  6. SINTROM [Concomitant]
  7. PRAZEPAM [Concomitant]
  8. REPAGLINIDE [Suspect]
     Indication: PRODUCT USED FOR UNKNOWN INDICATION
     Dosage: UNKNOWN
     Route: 048
     Dates: start: 20110701, end: 20120530
  9. QVAR 40 [Suspect]
     Indication: PRODUCT USED FOR UNKNOWN INDICATION
     Dosage: UNKNOWN
     Route: 045
     Dates: end: 20120529
  10. NEBIVOLOL [Suspect]
     Indication: PRODUCT USED FOR UNKNOWN INDICATION
     Dosage: 5 MG, UNK
     Route: 048
     Dates: start: 20110101, end: 20120531
  11. ASPIRIN [Concomitant]

REACTIONS (1)
  - HYPONATRAEMIA [None]
